FAERS Safety Report 7619884-9 (Version None)
Quarter: 2011Q3

REPORT INFORMATION
  Report Type: 
  Country: None (occurrence: None)
  Receive Date: 20110719
  Receipt Date: 20110705
  Transmission Date: 20111222
  Serious: Yes (Hospitalization)
  Sender: FDA-Public Use
  Company Number: US-SANOFI-AVENTIS-2011SA044205

PATIENT
  Age: 78 Year
  Sex: Male
  Weight: 119 kg

DRUGS (8)
  1. FUROSEMIDE [Concomitant]
     Route: 065
  2. WARFARIN SODIUM [Concomitant]
     Route: 065
  3. DRONEDARONE HCL [Suspect]
     Indication: ATRIAL FIBRILLATION
     Route: 048
     Dates: start: 20100927, end: 20101005
  4. ROSUVASTATIN [Concomitant]
     Route: 065
  5. CARVEDILOL [Concomitant]
     Route: 065
  6. INSULIN [Concomitant]
     Route: 065
  7. DILTIAZEM [Concomitant]
     Route: 065
  8. LISINOPRIL [Concomitant]
     Route: 065

REACTIONS (2)
  - ATRIAL FIBRILLATION [None]
  - IMPLANTABLE DEFIBRILLATOR INSERTION [None]
